FAERS Safety Report 7928744-5 (Version None)
Quarter: 2011Q4

REPORT INFORMATION
  Report Type: 
  Country: None (occurrence: None)
  Receive Date: 20111118
  Receipt Date: 20111115
  Transmission Date: 20120403
  Serious: Yes (Life-Threatening, Hospitalization, Other)
  Sender: FDA-Public Use
  Company Number: GB-BAYER-2011-107005

PATIENT
  Age: 72 Year
  Sex: Female
  Weight: 43 kg

DRUGS (6)
  1. IBUPROFEN [Suspect]
     Indication: ANALGESIC INTERVENTION SUPPORTIVE THERAPY
     Dosage: 400 MG, TID
     Dates: start: 20111008, end: 20111012
  2. ALBUTEROL SULFATE AUTOHALER [Concomitant]
  3. XARELTO [Interacting]
     Indication: THROMBOSIS PROPHYLAXIS
     Dosage: DAILY DOSE 10 MG
     Route: 048
     Dates: start: 20111008, end: 20111012
  4. BECLOMETHASONE DIPROPIONATE [Concomitant]
  5. ALENDRONATE SODIUM [Concomitant]
  6. CALCIUM CARBONATE [Concomitant]

REACTIONS (2)
  - DUODENAL ULCER HAEMORRHAGE [None]
  - MELAENA [None]
